FAERS Safety Report 14205612 (Version 1)
Quarter: 2017Q4

REPORT INFORMATION
  Report Type: Spontaneous
  Country: US (occurrence: US)
  Receive Date: 20171120
  Receipt Date: 20171120
  Transmission Date: 20180321
  Serious: Yes (Other)
  Sender: FDA-Public Use
  Company Number: US-ELI_LILLY_AND_COMPANY-US201711005934

PATIENT
  Sex: Female

DRUGS (5)
  1. HUMALOG [Suspect]
     Active Substance: INSULIN LISPRO
     Indication: TYPE 1 DIABETES MELLITUS
     Dosage: UNK, UNKNOWN
     Route: 065
     Dates: start: 2006
  2. HUMALOG [Suspect]
     Active Substance: INSULIN LISPRO
     Dosage: UNK, UNKNOWN
     Route: 065
  3. LANTUS [Concomitant]
     Active Substance: INSULIN GLARGINE
     Indication: PRODUCT USED FOR UNKNOWN INDICATION
  4. HUMALOG [Suspect]
     Active Substance: INSULIN LISPRO
     Indication: TYPE 1 DIABETES MELLITUS
     Dosage: UNK, UNKNOWN
     Route: 065
  5. GLUCAGON EMERGENCY KIT [Concomitant]
     Active Substance: GLUCAGON
     Indication: TYPE 1 DIABETES MELLITUS
     Dosage: UNK

REACTIONS (11)
  - Injection site injury [Not Recovered/Not Resolved]
  - Limb injury [Unknown]
  - Breast cancer [Unknown]
  - Haemorrhage [Unknown]
  - Dermatitis contact [Unknown]
  - Injection site erythema [Unknown]
  - Neuropathy peripheral [Not Recovered/Not Resolved]
  - Impaired gastric emptying [Unknown]
  - Blood glucose decreased [Not Recovered/Not Resolved]
  - Injection site streaking [Unknown]
  - Injection site haemorrhage [Unknown]
